FAERS Safety Report 7945006-0 (Version None)
Quarter: 2011Q4

REPORT INFORMATION
  Report Type: 
  Country: None (occurrence: None)
  Receive Date: 20111129
  Receipt Date: 20111117
  Transmission Date: 20120403
  Serious: No
  Sender: FDA-Public Use
  Company Number: JP-ABBOTT-11P-087-0703899-00

PATIENT
  Sex: Female
  Weight: 34.2 kg

DRUGS (6)
  1. HUMIRA [Suspect]
     Dates: start: 20110107, end: 20110107
  2. TPN [Concomitant]
     Indication: PRODUCT USED FOR UNKNOWN INDICATION
  3. ENTERAL NUTRITIONAL THERAPY [Concomitant]
     Indication: PRODUCT USED FOR UNKNOWN INDICATION
     Dates: start: 20080723
  4. HUMIRA [Suspect]
     Indication: CROHN'S DISEASE
     Route: 058
     Dates: start: 20101224, end: 20101224
  5. HUMIRA [Suspect]
     Dates: start: 20110121
  6. MESALAMINE [Concomitant]
     Indication: CROHN'S DISEASE
     Dosage: DAILY DOSE: 2250MG
     Route: 048
     Dates: start: 20080715

REACTIONS (1)
  - DYSGEUSIA [None]
